FAERS Safety Report 18341784 (Version 1)
Quarter: 2020Q4

REPORT INFORMATION
  Report Type: Report from Study
  Country: US (occurrence: US)
  Receive Date: 20201005
  Receipt Date: 20201005
  Transmission Date: 20210113
  Serious: Yes (Other)
  Sender: FDA-Public Use
  Company Number: US-ROCHE-2359366

PATIENT
  Age: 67 Year
  Sex: Male
  Weight: 95.7 kg

DRUGS (14)
  1. BENDAMUSTINE [Suspect]
     Active Substance: BENDAMUSTINE
     Indication: B-CELL LYMPHOMA
     Dosage: CYCLE 1 DAY 1
     Route: 042
     Dates: start: 20190717, end: 20190717
  2. MOTRIN [Concomitant]
     Active Substance: IBUPROFEN
     Route: 048
  3. PRINIVIL [Concomitant]
     Active Substance: LISINOPRIL
     Route: 048
  4. ASPIRIN. [Concomitant]
     Active Substance: ASPIRIN
     Route: 048
  5. LOPRESSOR [Concomitant]
     Active Substance: METOPROLOL TARTRATE
     Route: 048
     Dates: start: 20170213
  6. ZYLOPRIM [Concomitant]
     Active Substance: ALLOPURINOL
     Dosage: TOTAL 14 TABLETS
     Route: 048
     Dates: start: 20190715
  7. OBINUTUZUMAB. [Suspect]
     Active Substance: OBINUTUZUMAB
     Indication: B-CELL LYMPHOMA
     Dosage: CYCLE 1 DAY 1
     Route: 042
     Dates: start: 20190717, end: 20190717
  8. ZYLOPRIM [Concomitant]
     Active Substance: ALLOPURINOL
     Dosage: TOTAL 37 TABLETS (1 TAB 48 HOURS PRIOR TO CYCLE 2 DAY 1)
     Route: 048
     Dates: start: 20190717
  9. PEPCID [Concomitant]
     Active Substance: FAMOTIDINE
     Route: 048
     Dates: start: 20190717
  10. HYDRODIURIL [Concomitant]
     Active Substance: HYDROCHLOROTHIAZIDE
     Route: 048
     Dates: start: 20130213
  11. DAPSONE. [Concomitant]
     Active Substance: DAPSONE
     Indication: INFECTION
     Dosage: TOTAL 60 TABLETS
     Route: 048
     Dates: start: 20190717
  12. GRANIX [Concomitant]
     Active Substance: TBO-FILGRASTIM
     Dosage: INJECT 480 MCG UNDER SKIN ONE TIME DAILY IN EVENING.
     Route: 058
  13. ZOVIRAX [Concomitant]
     Active Substance: ACYCLOVIR
     Dosage: TOTAL 60 TABLETS
     Route: 048
     Dates: start: 20190717
  14. ZOFRAN [Concomitant]
     Active Substance: ONDANSETRON HYDROCHLORIDE
     Dosage: TOTAL 30 TABLETS
     Route: 048
     Dates: start: 20190717

REACTIONS (1)
  - Hypophosphataemia [Recovered/Resolved]

NARRATIVE: CASE EVENT DATE: 20190717
